FAERS Safety Report 24687050 (Version 2)
Quarter: 2025Q1

REPORT INFORMATION
  Report Type: Spontaneous
  Country: US (occurrence: US)
  Receive Date: 20241202
  Receipt Date: 20250204
  Transmission Date: 20250409
  Serious: No
  Sender: PFIZER
  Company Number: US-PFIZER INC-202400191297

PATIENT
  Age: 57 Year
  Sex: Female

DRUGS (3)
  1. TUKYSA [Suspect]
     Active Substance: TUCATINIB
     Indication: Breast cancer
  2. TUKYSA [Suspect]
     Active Substance: TUCATINIB
  3. TUKYSA [Suspect]
     Active Substance: TUCATINIB
     Dosage: 300MG BY MOUTH TWICE DAILY
     Route: 048

REACTIONS (2)
  - Off label use [Unknown]
  - Hypersensitivity [Unknown]
